FAERS Safety Report 11690916 (Version 1)
Quarter: 2015Q4

REPORT INFORMATION
  Report Type: Spontaneous
  Country: HK (occurrence: HK)
  Receive Date: 20151102
  Receipt Date: 20151102
  Transmission Date: 20160304
  Serious: Yes (Hospitalization, Other)
  Sender: FDA-Public Use
  Company Number: HK-JUBILANT CADISTA PHARMACEUTICALS-2015JUB00341

PATIENT
  Age: 82 Year
  Sex: Female

DRUGS (1)
  1. ALENDRONATE [Suspect]
     Active Substance: ALENDRONATE SODIUM
     Dosage: UNK

REACTIONS (3)
  - Fracture nonunion [Recovered/Resolved]
  - Atypical femur fracture [Recovered/Resolved]
  - Device breakage [Recovered/Resolved]
